FAERS Safety Report 10336348 (Version 3)
Quarter: 2015Q1

REPORT INFORMATION
  Report Type: Spontaneous
  Country: US (occurrence: US)
  Receive Date: 20140723
  Receipt Date: 20150119
  Transmission Date: 20150720
  Serious: No
  Sender: FDA-Public Use
  Company Number: US-UNITED THERAPEUTICS-UNT-2014-000758

PATIENT
  Sex: Male
  Weight: 86.62 kg

DRUGS (1)
  1. REMODULIN [Suspect]
     Active Substance: TREPROSTINIL
     Indication: PULMONARY ARTERIAL HYPERTENSION
     Dosage: 0.022 ?G/KG/MIN, CONTINUING
     Route: 041
     Dates: start: 20140428

REACTIONS (3)
  - Musculoskeletal stiffness [Unknown]
  - Muscle spasms [Recovering/Resolving]
  - Pain in extremity [Unknown]

NARRATIVE: CASE EVENT DATE: 2014
